FAERS Safety Report 25778929 (Version 1)
Quarter: 2025Q3

REPORT INFORMATION
  Report Type: Spontaneous
  Country: US (occurrence: None)
  Receive Date: 20250908
  Receipt Date: 20250908
  Transmission Date: 20251020
  Serious: No
  Sender: FDA-CTU
  Company Number: None

PATIENT
  Age: 33 Year
  Sex: Female
  Weight: 63 kg

DRUGS (1)
  1. OCREVUS [Suspect]
     Active Substance: OCRELIZUMAB
     Indication: Multiple sclerosis
     Route: 042
     Dates: start: 20250904, end: 20250904

REACTIONS (4)
  - Infusion related reaction [None]
  - Cough [None]
  - Erythema [None]
  - Pharyngeal hypoaesthesia [None]

NARRATIVE: CASE EVENT DATE: 20250904
